FAERS Safety Report 8094959-1 (Version None)
Quarter: 2012Q1

REPORT INFORMATION
  Report Type: 
  Country: None (occurrence: None)
  Receive Date: 20120131
  Receipt Date: 20111114
  Transmission Date: 20120608
  Serious: No
  Sender: FDA-Public Use
  Company Number: US-ABBOTT-11P-163-0873894-00

PATIENT
  Sex: Female
  Weight: 64.922 kg

DRUGS (5)
  1. CREON [Suspect]
     Indication: FLATULENCE
     Route: 048
     Dates: start: 20110914, end: 20111005
  2. ATIVAN [Concomitant]
     Indication: ANXIETY
     Route: 048
  3. CREON [Suspect]
     Indication: DYSPEPSIA
  4. AMBIEN [Concomitant]
     Indication: PRODUCT USED FOR UNKNOWN INDICATION
  5. OMEPRAZOLE [Concomitant]
     Indication: GASTROOESOPHAGEAL REFLUX DISEASE

REACTIONS (1)
  - ABDOMINAL PAIN [None]
